FAERS Safety Report 18507071 (Version 1)
Quarter: 2020Q4

REPORT INFORMATION
  Report Type: Spontaneous
  Country: US (occurrence: US)
  Receive Date: 20201115
  Receipt Date: 20201115
  Transmission Date: 20210114
  Serious: Yes (Disabling)
  Sender: FDA-Public Use
  Company Number: None

PATIENT
  Age: 62 Year
  Sex: Female
  Weight: 56.25 kg

DRUGS (4)
  1. SPIRIVA [Concomitant]
     Active Substance: TIOTROPIUM BROMIDE MONOHYDRATE
  2. CLAIRITIN [Concomitant]
  3. TEPROTUMUMAB. [Suspect]
     Active Substance: TEPROTUMUMAB
     Indication: DIPLOPIA
     Dosage: ?          OTHER FREQUENCY:Q 3 WEEKLY IV INFU;?
     Route: 042
     Dates: start: 20200925, end: 20200925
  4. METHIMAZOLE. [Concomitant]
     Active Substance: METHIMAZOLE

REACTIONS (2)
  - Drug ineffective [None]
  - Deafness neurosensory [None]

NARRATIVE: CASE EVENT DATE: 20200925
